FAERS Safety Report 5941417-3 (Version None)
Quarter: 2008Q4

REPORT INFORMATION
  Report Type: 
  Country: None (occurrence: None)
  Receive Date: 20081103
  Receipt Date: 20081103
  Transmission Date: 20090506
  Serious: Yes (Hospitalization)
  Sender: FDA-Public Use
  Company Number: None

PATIENT
  Age: 51 Year
  Sex: Female
  Weight: 52.1637 kg

DRUGS (1)
  1. SULFAMETHOXAZOLE AND TRIMETHOPRIM [Suspect]
     Indication: DIVERTICULITIS
     Dosage: 1 TABLET TWICE DAILY PO
     Route: 048
     Dates: start: 20040702, end: 20040709

REACTIONS (6)
  - BURNING SENSATION [None]
  - DRUG HYPERSENSITIVITY [None]
  - MUSCLE SPASMS [None]
  - PAIN [None]
  - PRURITUS [None]
  - URTICARIA [None]
